FAERS Safety Report 17664709 (Version 1)
Quarter: 2020Q2

REPORT INFORMATION
  Report Type: Spontaneous
  Country: US (occurrence: US)
  Receive Date: 20200414
  Receipt Date: 20200414
  Transmission Date: 20200713
  Serious: Yes (Other)
  Sender: FDA-Public Use
  Company Number: US-DRREDDYS-USA/USA/20/0121849

PATIENT
  Age: 32 Year
  Sex: Male

DRUGS (7)
  1. RITUXIMAB. [Suspect]
     Active Substance: RITUXIMAB
     Indication: KAPOSI^S SARCOMA
     Route: 065
  2. TENOFOVIR DISOPROXIL FUMARATE, EMTRICITABINE, DARUNAVIR, RITONAVIR [Concomitant]
     Indication: HIV INFECTION
     Route: 065
  3. DOXORUBICIN HYDROCHLORIDE. [Suspect]
     Active Substance: DOXORUBICIN HYDROCHLORIDE
     Indication: KAPOSI^S SARCOMA
     Route: 065
  4. RITUXIMAB. [Suspect]
     Active Substance: RITUXIMAB
     Indication: HERPES VIRUS INFECTION
  5. DOXORUBICIN HYDROCHLORIDE. [Suspect]
     Active Substance: DOXORUBICIN HYDROCHLORIDE
     Indication: HERPES VIRUS INFECTION
  6. RITUXIMAB. [Suspect]
     Active Substance: RITUXIMAB
     Indication: CYTOKINE RELEASE SYNDROME
  7. DOXORUBICIN HYDROCHLORIDE. [Suspect]
     Active Substance: DOXORUBICIN HYDROCHLORIDE
     Indication: CYTOKINE RELEASE SYNDROME

REACTIONS (1)
  - Hyperbilirubinaemia [Recovered/Resolved]
